FAERS Safety Report 25187572 (Version 1)
Quarter: 2025Q2

REPORT INFORMATION
  Report Type: Spontaneous
  Country: US (occurrence: US)
  Receive Date: 20250411
  Receipt Date: 20250411
  Transmission Date: 20250717
  Serious: Yes (Other)
  Sender: EXELA PHARMA SCIENCES
  Company Number: US-EXELAPHARMA-2025EXLA00040

PATIENT
  Age: 34 Year
  Sex: Male

DRUGS (4)
  1. FENTANYL [Suspect]
     Active Substance: FENTANYL
     Indication: Drug abuse
  2. SODIUM BICARBONATE [Suspect]
     Active Substance: SODIUM BICARBONATE
     Indication: Metabolic acidosis
     Route: 065
  3. FOMEPIZOLE [Concomitant]
     Active Substance: FOMEPIZOLE
     Route: 065
  4. Broad-spectrum unspecified antibiotics [Concomitant]
     Route: 065

REACTIONS (2)
  - Drug ineffective [Unknown]
  - Drug abuse [Unknown]
